FAERS Safety Report 4743411-7 (Version None)
Quarter: 2005Q3

REPORT INFORMATION
  Report Type: 
  Country: None (occurrence: None)
  Receive Date: 20050809
  Receipt Date: 20050728
  Transmission Date: 20060218
  Serious: Yes (Other)
  Sender: FDA-Public Use
  Company Number: 2005084986

PATIENT
  Age: 10 Year
  Sex: Female
  Weight: 35.3806 kg

DRUGS (1)
  1. GENOTROPIN [Suspect]
     Indication: GROWTH HORMONE DEFICIENCY
     Dosage: 2.2 MG (2.2 MG, DAILY)
     Dates: start: 20040517

REACTIONS (1)
  - DRUG HYPERSENSITIVITY [None]
